FAERS Safety Report 5826809-5 (Version None)
Quarter: 2008Q3

REPORT INFORMATION
  Report Type: 
  Country: None (occurrence: None)
  Receive Date: 20080728
  Receipt Date: 20080728
  Transmission Date: 20090109
  Serious: Yes (Other)
  Sender: FDA-Public Use
  Company Number: None

PATIENT
  Age: 58 Year
  Weight: 86.1834 kg

DRUGS (1)
  1. METHYLPREDNISOLONE 40MG SICOR PHARMACEUTICALS [Suspect]
     Indication: INFLAMMATION
     Dosage: 40 MG ONCE ID
     Route: 023
     Dates: start: 20080129, end: 20080129

REACTIONS (4)
  - BLOOD PRESSURE INCREASED [None]
  - DIZZINESS [None]
  - HEART RATE INCREASED [None]
  - NERVOUSNESS [None]
